FAERS Safety Report 4338366-3 (Version None)
Quarter: 2004Q2

REPORT INFORMATION
  Report Type: 
  Country: None (occurrence: None)
  Receive Date: 20040414
  Receipt Date: 20040323
  Transmission Date: 20050107
  Serious: Yes (Hospitalization, Other)
  Sender: FDA-Public Use
  Company Number: 200413540GDDC

PATIENT
  Age: 19 Year
  Sex: Female

DRUGS (2)
  1. FLAGYL [Suspect]
     Indication: VAGINITIS BACTERIAL
     Route: 048
     Dates: start: 20040311, end: 20040316
  2. TRILEPTIN [Concomitant]
     Indication: EPILEPSY
     Route: 048

REACTIONS (1)
  - GRAND MAL CONVULSION [None]
